FAERS Safety Report 4552371-3 (Version None)
Quarter: 2005Q1

REPORT INFORMATION
  Report Type: 
  Country: None (occurrence: None)
  Receive Date: 20050114
  Receipt Date: 20040319
  Transmission Date: 20050727
  Serious: No
  Sender: FDA-Public Use
  Company Number: US-GLAXOSMITHKLINE-A0503512A

PATIENT
  Age: 53 Year
  Sex: Female

DRUGS (2)
  1. IMITREX [Suspect]
     Indication: MIGRAINE
     Dosage: 1INJ AS REQUIRED
     Route: 058
     Dates: start: 20030101
  2. IMITREX [Suspect]
     Dosage: 1TAB AS REQUIRED
     Route: 048
     Dates: start: 20030101

REACTIONS (4)
  - ARRHYTHMIA [None]
  - HEART RATE INCREASED [None]
  - MUSCULOSKELETAL DISORDER [None]
  - PULSE PRESSURE INCREASED [None]
